FAERS Safety Report 4316559-9 (Version None)
Quarter: 2004Q1

REPORT INFORMATION
  Report Type: 
  Country: None (occurrence: None)
  Receive Date: 20040308
  Receipt Date: 20040127
  Transmission Date: 20041129
  Serious: Yes (Other)
  Sender: FDA-Public Use
  Company Number: PHEH2004US01233

PATIENT
  Age: 8 Year
  Sex: Female

DRUGS (1)
  1. GLEEVEC [Suspect]
     Indication: GASTROINTESTINAL STROMAL TUMOUR
     Dosage: 200 MG, QD; 150 MG, QD; 100 MG, QD
     Dates: start: 20030820

REACTIONS (2)
  - BLOOD CREATININE INCREASED [None]
  - HYPERTENSION [None]
